FAERS Safety Report 11757923 (Version 1)
Quarter: 2015Q4

REPORT INFORMATION
  Report Type: Spontaneous
  Country: CA (occurrence: CA)
  Receive Date: 20151120
  Receipt Date: 20151120
  Transmission Date: 20160304
  Serious: Yes (Hospitalization)
  Sender: FDA-Public Use
  Company Number: CA-MALLINCKRODT-T201505252

PATIENT
  Age: 29 Year
  Sex: Female

DRUGS (4)
  1. NIFEDIPINE. [Concomitant]
     Active Substance: NIFEDIPINE
     Dosage: XL 30 MG, QD
     Route: 048
  2. PROPANOLOL [Concomitant]
     Active Substance: PROPRANOLOL HYDROCHLORIDE
     Dosage: 20 MG, TID
     Route: 048
  3. METOPROLOL [Concomitant]
     Active Substance: METOPROLOL
     Dosage: SR 100 MG, QD
     Route: 048
  4. SODIUM IODIDE I 131 [Suspect]
     Active Substance: SODIUM IODIDE I-131
     Indication: RADIOACTIVE IODINE THERAPY
     Dosage: 370 MBQ, SINGLE
     Route: 065

REACTIONS (12)
  - Post procedural hypothyroidism [Recovered/Resolved]
  - Primary hyperaldosteronism [Unknown]
  - Hypertension [Unknown]
  - Hyperadrenalism [Unknown]
  - Paranoia [Recovered/Resolved]
  - Acute psychosis [Recovered/Resolved]
  - Psychotic behaviour [Recovered/Resolved]
  - Myxoedema [Recovered/Resolved]
  - Heart rate increased [Unknown]
  - Hypokalaemia [Unknown]
  - Anxiety [Recovered/Resolved]
  - Hyperthyroidism [Recovered/Resolved]
